FAERS Safety Report 4726249-6 (Version None)
Quarter: 2005Q3

REPORT INFORMATION
  Report Type: 
  Country: None (occurrence: None)
  Receive Date: 20050725
  Receipt Date: 20050712
  Transmission Date: 20060218
  Serious: Yes (Hospitalization, Other)
  Sender: FDA-Public Use
  Company Number: HQWYE182013JUL05

PATIENT
  Age: 4 Year
  Sex: Female

DRUGS (2)
  1. CHILDREN'S ADVIL [Suspect]
     Indication: LUNG DISORDER
     Dosage: 100 MG 4X PER 1 DAY ORAL
     Route: 048
     Dates: start: 20050601, end: 20050606
  2. DOLIPRANE (PARACETAMOL) [Concomitant]

REACTIONS (2)
  - CONDITION AGGRAVATED [None]
  - LUNG DISORDER [None]
